FAERS Safety Report 7816945-6 (Version None)
Quarter: 2011Q4

REPORT INFORMATION
  Report Type: 
  Country: None (occurrence: None)
  Receive Date: 20111017
  Receipt Date: 20111005
  Transmission Date: 20120403
  Serious: Yes (Other)
  Sender: FDA-Public Use
  Company Number: BE-SANOFI-AVENTIS-2011SA065333

PATIENT
  Age: 39 Year
  Sex: Female

DRUGS (6)
  1. MEDROL [Concomitant]
  2. KETOPROFEN [Interacting]
     Indication: POLYARTHRITIS
     Dosage: IN THE EVENNING
     Route: 048
     Dates: start: 19930101
  3. KETOPROFEN [Interacting]
     Dosage: IN THE MORNING
     Route: 048
     Dates: start: 20080101
  4. METHOTREXATE [Concomitant]
  5. ARAVA [Suspect]
     Indication: POLYARTHRITIS
     Dosage: IN THE EVENING
     Route: 048
  6. KETOPROFEN [Interacting]
     Route: 048

REACTIONS (7)
  - DRUG INTERACTION [None]
  - GYNAECOLOGICAL EXAMINATION ABNORMAL [None]
  - CARDIAC FAILURE [None]
  - COMPLEMENT FACTOR DECREASED [None]
  - HAEMOGLOBIN DECREASED [None]
  - GASTROOESOPHAGEAL REFLUX DISEASE [None]
  - MITRAL VALVE PROLAPSE [None]
